FAERS Safety Report 6855807-8 (Version None)
Quarter: 2010Q3

REPORT INFORMATION
  Report Type: 
  Country: None (occurrence: None)
  Receive Date: 20100715
  Receipt Date: 20100715
  Transmission Date: 20110219
  Serious: Yes (Other)
  Sender: FDA-Public Use
  Company Number: None

PATIENT
  Sex: Male
  Weight: 92.9874 kg

DRUGS (2)
  1. AUGMENTIN '125' [Suspect]
     Indication: RHINITIS ALLERGIC
     Dosage: 500MG BID PO
     Route: 048
     Dates: start: 20091211, end: 20091231
  2. AUGMENTIN '125' [Suspect]
     Indication: SINUSITIS
     Dosage: 500MG BID PO
     Route: 048
     Dates: start: 20091211, end: 20091231

REACTIONS (2)
  - ABDOMINAL DISCOMFORT [None]
  - DRUG INEFFECTIVE [None]
